FAERS Safety Report 20946280 (Version 1)
Quarter: 2022Q2

REPORT INFORMATION
  Report Type: Spontaneous
  Country: FR (occurrence: FR)
  Receive Date: 20220610
  Receipt Date: 20220610
  Transmission Date: 20220721
  Serious: Yes (Hospitalization, Other)
  Sender: FDA-Public Use
  Company Number: None

PATIENT
  Age: 79 Year
  Sex: Male
  Weight: 73 kg

DRUGS (4)
  1. APIXABAN [Suspect]
     Active Substance: APIXABAN
     Indication: Cerebrovascular accident prophylaxis
     Route: 065
     Dates: start: 20210831
  2. APIXABAN [Suspect]
     Active Substance: APIXABAN
     Dosage: 5 MG, BID (LAST DOSE ON 26/08/2021 IN THE EVENING)
     Route: 065
     Dates: end: 20210826
  3. HEPARIN SODIUM [Suspect]
     Active Substance: HEPARIN SODIUM
     Indication: Transcatheter aortic valve implantation
     Route: 042
     Dates: start: 20210830, end: 20210831
  4. INNOHEP [Suspect]
     Active Substance: TINZAPARIN SODIUM
     Indication: Transcatheter aortic valve implantation
     Dosage: 14000 IU, QD (14000 IU, DAILY, IN THE MORNING)
     Route: 058
     Dates: start: 20210827, end: 20210829

REACTIONS (2)
  - Heparin-induced thrombocytopenia [Recovered/Resolved]
  - Ischaemic stroke [Recovering/Resolving]

NARRATIVE: CASE EVENT DATE: 20210908
